FAERS Safety Report 15160104 (Version 1)
Quarter: 2018Q3

REPORT INFORMATION
  Report Type: Spontaneous
  Country: ES (occurrence: ES)
  Receive Date: 20180718
  Receipt Date: 20180718
  Transmission Date: 20181010
  Serious: Yes (Hospitalization)
  Sender: FDA-Public Use
  Company Number: ES-TEVA-2018-ES-928062

PATIENT
  Age: 28 Day
  Sex: Female

DRUGS (2)
  1. IBUPROFENO [Suspect]
     Active Substance: IBUPROFEN
     Indication: PATENT DUCTUS ARTERIOSUS
     Dosage: 5 MG/KG DAILY;
     Route: 042
     Dates: start: 20170906, end: 20170907
  2. IBUPROFENO [Suspect]
     Active Substance: IBUPROFEN
     Dosage: 10MG KG DIA
     Dates: start: 20170905, end: 20170905

REACTIONS (2)
  - Necrotising colitis [Recovered/Resolved]
  - Acute kidney injury [Recovered/Resolved]

NARRATIVE: CASE EVENT DATE: 20170909
